FAERS Safety Report 8969962 (Version 1)
Quarter: 2012Q4

REPORT INFORMATION
  Report Type: Report from Study
  Country: PL (occurrence: PL)
  Receive Date: 20121217
  Receipt Date: 20121217
  Transmission Date: 20130627
  Serious: Yes (Hospitalization)
  Sender: FDA-Public Use
  Company Number: PL-ROCHE-1167532

PATIENT
  Age: 65 Year
  Sex: Female

DRUGS (4)
  1. TRASTUZUMAB [Suspect]
     Indication: BREAST CANCER METASTATIC
     Route: 042
     Dates: start: 20060105, end: 20110217
  2. LETROZOLE [Suspect]
     Indication: BREAST CANCER METASTATIC
     Route: 048
     Dates: start: 200408, end: 20110325
  3. PAMIDRONIC ACID [Suspect]
     Indication: BREAST CANCER METASTATIC
     Route: 042
     Dates: start: 200509
  4. FENTANYL [Concomitant]
     Indication: PAIN
     Route: 062
     Dates: start: 200509

REACTIONS (1)
  - Metastases to central nervous system [Recovering/Resolving]
